FAERS Safety Report 7002040-5 (Version None)
Quarter: 2010Q3

REPORT INFORMATION
  Report Type: 
  Country: None (occurrence: None)
  Receive Date: 20100920
  Receipt Date: 20100909
  Transmission Date: 20110219
  Serious: Yes (Other)
  Sender: FDA-Public Use
  Company Number: JP-JNJCH-2010020903

PATIENT
  Sex: Female

DRUGS (1)
  1. ZYRTEC [Suspect]
     Indication: ECZEMA ASTEATOTIC
     Dosage: TEXT:10 MG QD
     Route: 048
     Dates: start: 20100906, end: 20100907

REACTIONS (1)
  - ANAPHYLACTOID REACTION [None]
